FAERS Safety Report 7025087-1 (Version None)
Quarter: 2010Q3

REPORT INFORMATION
  Report Type: 
  Country: None (occurrence: None)
  Receive Date: 20100929
  Receipt Date: 20100913
  Transmission Date: 20110219
  Serious: Yes (Other)
  Sender: FDA-Public Use
  Company Number: 2010003318

PATIENT
  Age: 31 Year
  Weight: 56.2 kg

DRUGS (17)
  1. ERLOTINIB HYDROCHLORIDE [Suspect]
     Indication: ADENOSQUAMOUS CELL LUNG CANCER
     Dosage: (150 MG,QD),ORAL
     Route: 048
     Dates: start: 20090130, end: 20090211
  2. NOVAMIN (PROCHLORPERAZINE) [Suspect]
     Indication: ADENOSQUAMOUS CELL LUNG CANCER
     Dosage: (150 MG,QD),ORAL
     Route: 048
     Dates: start: 20090130, end: 20090211
  3. OXYCONTIN [Concomitant]
  4. OXYCODONE HCL [Concomitant]
  5. CODEINE PHOSPHATE (CODEINE PHOSPHATE) [Concomitant]
  6. ZOLPIDEM TARTRATE [Concomitant]
  7. FLURBIPROFEN [Concomitant]
  8. LOXONIN (LOXOPROFEN SODIUM) [Concomitant]
  9. ACETAMINOPHEN [Concomitant]
  10. LENDORM [Concomitant]
  11. HEPARIN SODIUM [Concomitant]
  12. AMINOPHYLLINE [Concomitant]
  13. HYDROCORTISONE SODIUM SUCCINATE [Concomitant]
  14. FLURBIPROFEN [Concomitant]
  15. MORPHINE [Concomitant]
  16. DECADRON [Concomitant]
  17. FAMOTIDINE [Concomitant]

REACTIONS (9)
  - ADENOSQUAMOUS CELL LUNG CANCER [None]
  - AKATHISIA [None]
  - ASPARTATE AMINOTRANSFERASE INCREASED [None]
  - BLOOD ALKALINE PHOSPHATASE INCREASED [None]
  - DIARRHOEA [None]
  - HYPOCALCAEMIA [None]
  - MALIGNANT NEOPLASM PROGRESSION [None]
  - MUSCLE TWITCHING [None]
  - RASH [None]
